FAERS Safety Report 4276789-1 (Version None)
Quarter: 2004Q1

REPORT INFORMATION
  Report Type: 
  Country: None (occurrence: None)
  Receive Date: 20040120
  Receipt Date: 20040114
  Transmission Date: 20041129
  Serious: Yes (Other)
  Sender: FDA-Public Use
  Company Number: STA-AE-04-MTX-013

PATIENT
  Sex: Female

DRUGS (3)
  1. RHEUMATREX [Suspect]
     Indication: RHEUMATOID ARTHRITIS
     Dosage: ORAL
     Route: 048
  2. AZULFIDINE [Concomitant]
  3. LOXONIN (LOXOPROFEN SODIUM) [Concomitant]

REACTIONS (3)
  - BONE MARROW DEPRESSION [None]
  - MYELODYSPLASTIC SYNDROME [None]
  - RENAL DISORDER [None]
